FAERS Safety Report 15256908 (Version 4)
Quarter: 2019Q3

REPORT INFORMATION
  Report Type: Spontaneous
  Country: US (occurrence: US)
  Receive Date: 20180808
  Receipt Date: 20190830
  Transmission Date: 20191004
  Serious: No
  Sender: FDA-Public Use
  Company Number: US-ACTELION-A-NJ2018-177114

PATIENT
  Sex: Female

DRUGS (2)
  1. OPSUMIT [Suspect]
     Active Substance: MACITENTAN
     Indication: PULMONARY ARTERIAL HYPERTENSION
     Dosage: 10 MG, QD
     Route: 048
     Dates: start: 20170809
  2. PROCRIT [Concomitant]
     Active Substance: ERYTHROPOIETIN

REACTIONS (7)
  - Red blood cell count decreased [Unknown]
  - Cystitis [Unknown]
  - Product dose omission [Unknown]
  - Stress [Unknown]
  - Tremor [Unknown]
  - Memory impairment [Unknown]
  - Sjogren^s syndrome [Unknown]
